FAERS Safety Report 5847834-4 (Version None)
Quarter: 2008Q3

REPORT INFORMATION
  Report Type: 
  Country: None (occurrence: None)
  Receive Date: 20080814
  Receipt Date: 20080814
  Transmission Date: 20090109
  Serious: Yes (Hospitalization)
  Sender: FDA-Public Use
  Company Number: None

PATIENT
  Age: 13 Year
  Sex: Male
  Weight: 53.6 kg

DRUGS (2)
  1. ARIPIPRAZOLE [Suspect]
     Indication: ANGER
     Dosage: 5MG QHS PO  (DURATION: 1 DOSE)
     Route: 048
     Dates: start: 20080805, end: 20080805
  2. ARIPIPRAZOLE [Suspect]
     Indication: MOOD ALTERED
     Dosage: 5MG QHS PO  (DURATION: 1 DOSE)
     Route: 048
     Dates: start: 20080805, end: 20080805

REACTIONS (4)
  - CHEST DISCOMFORT [None]
  - PHARYNGEAL OEDEMA [None]
  - RESPIRATORY DISTRESS [None]
  - SPEECH DISORDER [None]
